FAERS Safety Report 6622211-7 (Version None)
Quarter: 2010Q1

REPORT INFORMATION
  Report Type: 
  Country: None (occurrence: None)
  Receive Date: 20100310
  Receipt Date: 20100303
  Transmission Date: 20100710
  Serious: Yes (Other)
  Sender: FDA-Public Use
  Company Number: FR-BIOGENIDEC-2010BI007332

PATIENT
  Age: 39 Year
  Sex: Female

DRUGS (7)
  1. TYSABRI [Suspect]
     Indication: MULTIPLE SCLEROSIS
     Route: 042
     Dates: start: 20081209
  2. DEPAKENE [Concomitant]
  3. CERIS [Concomitant]
  4. URBANYL [Concomitant]
  5. TAMSULOSINE [Concomitant]
  6. STILNOX [Concomitant]
  7. MANTADIX [Concomitant]

REACTIONS (1)
  - SKIN NEOPLASM EXCISION [None]
